FAERS Safety Report 5895873-X (Version None)
Quarter: 2008Q3

REPORT INFORMATION
  Report Type: 
  Country: None (occurrence: None)
  Receive Date: 20080924
  Receipt Date: 20080916
  Transmission Date: 20090109
  Serious: Yes (Hospitalization)
  Sender: FDA-Public Use
  Company Number: FR-ASTRAZENECA-2008CG01349

PATIENT
  Age: 31960 Day
  Sex: Female

DRUGS (13)
  1. ZESTORETIC [Interacting]
     Dosage: 12.5 + 20 MG EVERY OTHER DAY
     Route: 048
  2. NITRODERM [Interacting]
     Route: 062
  3. ISOSORBIDE DINITRATE [Interacting]
     Route: 048
     Dates: start: 20080725, end: 20080725
  4. IKOREL [Interacting]
     Route: 048
     Dates: start: 20080725, end: 20080725
  5. RIVOTRIL [Suspect]
     Route: 048
     Dates: start: 20080725, end: 20080725
  6. NATI K [Concomitant]
     Route: 048
  7. CIPRALAN [Concomitant]
     Route: 048
  8. NEO-MERCAZOLE TAB [Concomitant]
     Route: 048
  9. OROCAL D(3) [Concomitant]
  10. ARICEPT [Concomitant]
     Route: 048
  11. MEMANTINE HCL [Concomitant]
     Route: 048
  12. DOLIPRANE [Concomitant]
     Route: 048
  13. EFFEXOR [Concomitant]
     Route: 048

REACTIONS (4)
  - DRUG INTERACTION [None]
  - HYPOTENSION [None]
  - MALAISE [None]
  - SOMNOLENCE [None]
